FAERS Safety Report 6694202-1 (Version None)
Quarter: 2010Q2

REPORT INFORMATION
  Report Type: 
  Country: None (occurrence: None)
  Receive Date: 20100421
  Receipt Date: 20100415
  Transmission Date: 20101027
  Serious: Yes (Hospitalization, Other)
  Sender: FDA-Public Use
  Company Number: ALL1-2010-02186

PATIENT
  Age: 85 Year
  Sex: Female
  Weight: 73.9 kg

DRUGS (16)
  1. FOSRENOL [Suspect]
     Indication: HYPERPHOSPHATAEMIA
     Dosage: 1000 MG, 1X/DAY:QD, ORAL
     Route: 048
     Dates: start: 20090101
  2. FOSRENOL [Suspect]
     Indication: RENAL FAILURE CHRONIC
     Dosage: 1000 MG, 1X/DAY:QD, ORAL
     Route: 048
     Dates: start: 20090101
  3. NEPHROCAPS [Concomitant]
  4. ASCORBIC ACID [Concomitant]
  5. BOTIN [Concomitant]
  6. CYNOCOBALAMIN [Concomitant]
  7. FOLIC ACID [Concomitant]
  8. NICOTINAMIDE [Concomitant]
  9. PANTOTHENIC ACID, PYRIDOXINE HYDROCHLORIDE, RIBOFLAVIN, THIAMINE HYDRO [Concomitant]
  10. ASPRIN (ACETYLASLICYLIC ACID) TABLET [Concomitant]
  11. CALCIUM (CALCIUM) TABLET [Concomitant]
  12. DILTAZEM (DILTIAZEM) [Concomitant]
  13. LEVOTHYROXINE  (LEVOTHYROXINE) TABLET [Concomitant]
  14. MIDODRINE HYDROCHLORIDE [Concomitant]
  15. MIRALAX [Concomitant]
  16. ALL OTHER THERAPEUTIC PRODUCTS [Concomitant]

REACTIONS (4)
  - ARRHYTHMIA [None]
  - DYSPHAGIA [None]
  - OROPHARYNGEAL PAIN [None]
  - SHUNT OCCLUSION [None]
